FAERS Safety Report 12866728 (Version 2)
Quarter: 2016Q4

REPORT INFORMATION
  Report Type: Report from Study
  Country: JP (occurrence: JP)
  Receive Date: 20161020
  Receipt Date: 20161028
  Transmission Date: 20170207
  Serious: Yes (Hospitalization, Other)
  Sender: FDA-Public Use
  Company Number: JP-BRISTOL-MYERS SQUIBB COMPANY-BMS-2016-086252

PATIENT
  Age: 61 Year
  Sex: Male
  Weight: 92.3 kg

DRUGS (11)
  1. NIVOLUMAB [Suspect]
     Active Substance: NIVOLUMAB
     Indication: SQUAMOUS CELL CARCINOMA
     Dosage: 3.0 MG/KG, Q2WK
     Route: 042
     Dates: start: 20160926
  2. BESOFTEN [Concomitant]
     Active Substance: SODIUM ALGINATE
     Indication: DRY SKIN
     Dosage: UNK
     Route: 061
     Dates: start: 20160222, end: 20161024
  3. MOGAMULIZUMAB [Suspect]
     Active Substance: MOGAMULIZUMAB
     Indication: SQUAMOUS CELL CARCINOMA
     Dosage: 1.0 MG/KG, Q1W IN CYCLE1, Q2WK IN SUBSEQUENT
     Route: 042
     Dates: start: 20160926, end: 20160926
  4. GLACTIV [Concomitant]
     Active Substance: SITAGLIPTIN
     Indication: TYPE 2 DIABETES MELLITUS
     Dosage: 50 MG, QD
     Route: 048
     Dates: start: 20160810
  5. ZINC OXIDE. [Concomitant]
     Active Substance: ZINC OXIDE
     Indication: PARONYCHIA
     Dosage: UNK
     Route: 061
     Dates: start: 20160902
  6. PRANLUKAST [Concomitant]
     Active Substance: PRANLUKAST
     Indication: COUGH
     Dosage: 225 MG, BID
     Route: 048
     Dates: start: 2016
  7. MAGNESIUM OXIDE. [Concomitant]
     Active Substance: MAGNESIUM OXIDE
     Indication: CONSTIPATION
     Dosage: 250 MG, TID
     Route: 048
     Dates: start: 20160310
  8. BESOFTEN [Concomitant]
     Active Substance: SODIUM ALGINATE
     Indication: DRY SKIN
     Dosage: UNK
     Route: 061
     Dates: start: 20160402
  9. REBAMIPIDE [Concomitant]
     Active Substance: REBAMIPIDE
     Indication: GASTRITIS PROPHYLAXIS
     Dosage: 100 MG, TID
     Route: 048
     Dates: start: 20160216
  10. LOBU [Concomitant]
     Active Substance: LOBUCAVIR
     Indication: TUMOUR PAIN
     Dosage: 60 MG, TID
     Route: 048
     Dates: start: 20160216
  11. OPSO [Concomitant]
     Active Substance: MORPHINE HYDROCHLORIDE
     Indication: PRODUCT USED FOR UNKNOWN INDICATION
     Dosage: 5 MG, PRN
     Route: 048
     Dates: start: 20161004

REACTIONS (1)
  - Bronchostenosis [Not Recovered/Not Resolved]

NARRATIVE: CASE EVENT DATE: 20161008
